FAERS Safety Report 6048714-4 (Version None)
Quarter: 2009Q1

REPORT INFORMATION
  Report Type: 
  Country: None (occurrence: None)
  Receive Date: 20090123
  Receipt Date: 20090116
  Transmission Date: 20090719
  Serious: Yes (Hospitalization)
  Sender: FDA-Public Use
  Company Number: DE-ROCHE-608904

PATIENT
  Age: 68 Year
  Sex: Female
  Weight: 61 kg

DRUGS (6)
  1. GRANISETRON HCL [Suspect]
     Route: 042
     Dates: start: 20081202, end: 20081202
  2. FLUOROURACIL [Suspect]
     Route: 042
     Dates: start: 20081202
  3. CYCLOPHOSPHAMIDE [Suspect]
     Route: 042
     Dates: start: 20081202
  4. EPIRUBICIN [Suspect]
     Route: 042
     Dates: start: 20081202
  5. UROMITEXAN [Suspect]
     Dosage: NAME REPORTED AS UROMITOXAN
     Route: 042
     Dates: start: 20081202, end: 20081202
  6. DEXAMETHASONE [Suspect]
     Route: 042
     Dates: start: 20081202, end: 20081202

REACTIONS (2)
  - STOMATITIS [None]
  - WHITE BLOOD CELL DISORDER [None]
